FAERS Safety Report 4756300-9 (Version None)
Quarter: 2005Q3

REPORT INFORMATION
  Report Type: 
  Country: None (occurrence: None)
  Receive Date: 20050830
  Receipt Date: 20050520
  Transmission Date: 20060218
  Serious: Yes (Hospitalization, Other)
  Sender: FDA-Public Use
  Company Number: US-GLAXOSMITHKLINE-A0559925A

PATIENT
  Age: 56 Year
  Sex: Female
  Weight: 91.8 kg

DRUGS (3)
  1. WELLBUTRIN XL [Suspect]
     Indication: DEPRESSION
     Route: 048
     Dates: start: 20050423, end: 20050510
  2. PAXIL [Suspect]
     Indication: DEPRESSION
     Dosage: 12.5MG PER DAY
     Route: 065
     Dates: start: 20040415, end: 20050419
  3. HYZAAR [Concomitant]
     Dates: end: 20050502

REACTIONS (1)
  - ORTHOSTATIC HYPOTENSION [None]
